FAERS Safety Report 22737064 (Version 3)
Quarter: 2023Q4

REPORT INFORMATION
  Report Type: Spontaneous
  Country: GB (occurrence: GB)
  Receive Date: 20230721
  Receipt Date: 20231113
  Transmission Date: 20240110
  Serious: Yes (Other)
  Sender: FDA-Public Use
  Company Number: GB-BEIGENE-BGN-2023-007403

PATIENT

DRUGS (2)
  1. BRUKINSA [Suspect]
     Active Substance: ZANUBRUTINIB
     Indication: Waldenstrom^s macroglobulinaemia
     Dosage: UNK
     Dates: start: 202211
  2. BRUKINSA [Suspect]
     Active Substance: ZANUBRUTINIB
     Dosage: UNK

REACTIONS (1)
  - Sarcoidosis [Unknown]
